FAERS Safety Report 16349849 (Version 2)
Quarter: 2019Q3

REPORT INFORMATION
  Report Type: Spontaneous
  Country: CO (occurrence: CO)
  Receive Date: 20190523
  Receipt Date: 20190711
  Transmission Date: 20191004
  Serious: Yes (Other)
  Sender: FDA-Public Use
  Company Number: CO-PFIZER INC-2018471859

PATIENT
  Age: 10 Year
  Sex: Female

DRUGS (1)
  1. GENOTROPIN [Suspect]
     Active Substance: SOMATROPIN
     Indication: TURNER^S SYNDROME
     Dosage: 1 MG, DAILY
     Route: 058
     Dates: start: 2010

REACTIONS (2)
  - Ocular neoplasm [Unknown]
  - Neoplasm [Unknown]
